FAERS Safety Report 9396304 (Version 1)
Quarter: 2013Q3

REPORT INFORMATION
  Report Type: Spontaneous
  Country: DE (occurrence: None)
  Receive Date: 20130701
  Receipt Date: 20130701
  Transmission Date: 20140515
  Serious: Yes (Other)
  Sender: FDA-Public Use
  Company Number: 2013036673

PATIENT
  Age: 61 Year
  Sex: Male

DRUGS (1)
  1. PRIVIGEN [Suspect]
     Indication: APHERESIS
     Dosage: 5 G, QD, START/STOP DATE: ??-MAY-2013 FROM 15:00 T0 15:30, INTRAVENOUS (NOT OTHERWISE SPECIFIED)
     Route: 042

REACTIONS (4)
  - Cardiovascular insufficiency [None]
  - Flank pain [None]
  - Chills [None]
  - Anaphylactic reaction [None]
